FAERS Safety Report 26190830 (Version 1)
Quarter: 2025Q4

REPORT INFORMATION
  Report Type: Spontaneous
  Country: US (occurrence: US)
  Receive Date: 20251223
  Receipt Date: 20251223
  Transmission Date: 20260117
  Serious: No
  Sender: SANDOZ
  Company Number: US-SANDOZ-SDZ2025US096172

PATIENT
  Sex: Male

DRUGS (2)
  1. ALBUTEROL SULFATE [Suspect]
     Active Substance: ALBUTEROL SULFATE
     Indication: Product used for unknown indication
  2. ALBUTEROL SULFATE [Suspect]
     Active Substance: ALBUTEROL SULFATE

REACTIONS (6)
  - Circumstance or information capable of leading to medication error [Unknown]
  - Product packaging issue [Unknown]
  - Device issue [Unknown]
  - Device leakage [Unknown]
  - Device malfunction [Unknown]
  - Product design issue [Unknown]

NARRATIVE: CASE EVENT DATE: 20251216
